FAERS Safety Report 6782196-X (Version None)
Quarter: 2010Q2

REPORT INFORMATION
  Report Type: 
  Country: None (occurrence: None)
  Receive Date: 20100621
  Receipt Date: 20100609
  Transmission Date: 20101027
  Serious: Yes (Other)
  Sender: FDA-Public Use
  Company Number: US-PFIZER INC-2010068711

PATIENT
  Sex: Female
  Weight: 108.84 kg

DRUGS (3)
  1. CHANTIX [Suspect]
     Indication: SMOKING CESSATION THERAPY
     Dosage: 1 MG, 2X/DAY
     Route: 048
     Dates: start: 20100501, end: 20100601
  2. CHANTIX [Suspect]
     Dosage: UNK
     Route: 048
     Dates: start: 20100401, end: 20100501
  3. ORTHO TRI-CYCLEN [Concomitant]
     Indication: CONTRACEPTION
     Dosage: UNK

REACTIONS (7)
  - AGITATION [None]
  - HOSTILITY [None]
  - MEMORY IMPAIRMENT [None]
  - MOOD SWINGS [None]
  - PERSONALITY CHANGE [None]
  - SLEEP DISORDER [None]
  - SUICIDAL IDEATION [None]
